FAERS Safety Report 26026014 (Version 1)
Quarter: 2025Q4

REPORT INFORMATION
  Report Type: Spontaneous
  Country: US (occurrence: US)
  Receive Date: 20251111
  Receipt Date: 20251111
  Transmission Date: 20260118
  Serious: No
  Sender: BAYER HEALTHCARE LLC
  Company Number: US-BAYER-2025A147330

PATIENT
  Sex: Female

DRUGS (1)
  1. MIRALAX [Suspect]
     Active Substance: POLYETHYLENE GLYCOL 3350
     Indication: Constipation
     Dosage: PRN 1 CUPFUL A DAY WITH COFFEE AS NEEDED (2-3 DAYS IN A ROW) DOSE
     Route: 048

REACTIONS (3)
  - Product closure removal difficult [Recovered/Resolved]
  - Product package associated injury [Recovered/Resolved]
  - Incorrect product administration duration [Unknown]

NARRATIVE: CASE EVENT DATE: 20151101
